FAERS Safety Report 13897465 (Version 1)
Quarter: 2017Q3

REPORT INFORMATION
  Report Type: Spontaneous
  Country: US (occurrence: US)
  Receive Date: 20170823
  Receipt Date: 20170823
  Transmission Date: 20171127
  Serious: Yes (Other)
  Sender: FDA-Public Use
  Company Number: US-SA-2016SA211375

PATIENT
  Age: 74 Year
  Sex: Male
  Weight: 140.6 kg

DRUGS (7)
  1. ELIQUIS [Concomitant]
     Active Substance: APIXABAN
  2. MULTAQ [Suspect]
     Active Substance: DRONEDARONE
     Indication: ATRIAL FIBRILLATION
     Route: 065
     Dates: start: 20161017, end: 20161114
  3. HYDRALAZINE [Concomitant]
     Active Substance: HYDRALAZINE HYDROCHLORIDE
  4. ATORVASTATIN [Concomitant]
     Active Substance: ATORVASTATIN
  5. NIFEDIPINE. [Concomitant]
     Active Substance: NIFEDIPINE
  6. FUROSEMIDE. [Concomitant]
     Active Substance: FUROSEMIDE
  7. VALSARTAN. [Concomitant]
     Active Substance: VALSARTAN

REACTIONS (1)
  - Atrial fibrillation [Not Recovered/Not Resolved]
